FAERS Safety Report 5052444-5 (Version None)
Quarter: 2006Q3

REPORT INFORMATION
  Report Type: 
  Country: None (occurrence: None)
  Receive Date: 20060717
  Receipt Date: 20050915
  Transmission Date: 20061208
  Serious: No
  Sender: FDA-Public Use
  Company Number: US-BRISTOL-MYERS SQUIBB COMPANY-13112479

PATIENT
  Age: 46 Year
  Sex: Female
  Weight: 73 kg

DRUGS (4)
  1. ESTRACE [Suspect]
     Indication: HORMONE REPLACEMENT THERAPY
     Route: 048
     Dates: start: 20030101, end: 20040901
  2. LIPITOR [Concomitant]
     Dates: start: 20000101
  3. TOPAMAX [Concomitant]
     Dates: start: 20030101
  4. CYMBALTA [Concomitant]
     Dates: start: 20030101

REACTIONS (2)
  - DYSPAREUNIA [None]
  - VAGINAL PAIN [None]
